APPROVED DRUG PRODUCT: MILPROSA
Active Ingredient: PROGESTERONE
Strength: 1.78GM
Dosage Form/Route: SYSTEM;VAGINAL
Application: N201110 | Product #001
Applicant: FERRING PHARMACEUTICALS INC
Approved: Apr 29, 2020 | RLD: Yes | RS: No | Type: DISCN

PATENTS:
Patent 10548904 | Expires: Feb 3, 2029
Patent 8580293 | Expires: Jan 21, 2030
Patent 10537584 | Expires: Feb 3, 2029